FAERS Safety Report 15087704 (Version 2)
Quarter: 2018Q3

REPORT INFORMATION
  Report Type: Report from Study
  Country: GB (occurrence: GB)
  Receive Date: 20180629
  Receipt Date: 20180802
  Transmission Date: 20181010
  Serious: Yes (Hospitalization)
  Sender: FDA-Public Use
  Company Number: GB-BIOGEN-2018BI00601454

PATIENT
  Age: 56 Year
  Sex: Female

DRUGS (2)
  1. TYSABRI [Suspect]
     Active Substance: NATALIZUMAB
     Dosage: PT SAYS APPROXIMATELY 9 YEARS AGO
     Route: 042
  2. TYSABRI [Suspect]
     Active Substance: NATALIZUMAB
     Indication: MULTIPLE SCLEROSIS
     Route: 042

REACTIONS (10)
  - Dyspnoea [Recovered/Resolved]
  - Nerve root compression [Not Recovered/Not Resolved]
  - Chest pain [Recovered/Resolved]
  - Lymphoedema [Not Recovered/Not Resolved]
  - Troponin increased [Recovered/Resolved]
  - Tachycardia [Recovered/Resolved]
  - Acute myocardial infarction [Recovered/Resolved]
  - Micturition urgency [Not Recovered/Not Resolved]
  - Malaise [Recovered/Resolved]
  - Blood pressure increased [Recovered/Resolved]

NARRATIVE: CASE EVENT DATE: 20180305
